FAERS Safety Report 24560324 (Version 3)
Quarter: 2025Q1

REPORT INFORMATION
  Report Type: Spontaneous
  Country: PH (occurrence: PH)
  Receive Date: 20241029
  Receipt Date: 20250212
  Transmission Date: 20250408
  Serious: Yes (Hospitalization, Other)
  Sender: RANBAXY
  Company Number: PH-SUN PHARMACEUTICAL INDUSTRIES LTD-2024R1-475918

PATIENT
  Age: 29 Year
  Sex: Female

DRUGS (4)
  1. MYCOPHENOLATE MOFETIL [Suspect]
     Active Substance: MYCOPHENOLATE MOFETIL
     Indication: Mucocutaneous disorder
     Route: 065
  2. PREDNISONE [Suspect]
     Active Substance: PREDNISONE
     Indication: Mucocutaneous disorder
     Route: 065
  3. HYDROXYCHLOROQUINE [Suspect]
     Active Substance: HYDROXYCHLOROQUINE
     Indication: Mucocutaneous disorder
     Route: 065
  4. AZATHIOPRINE [Suspect]
     Active Substance: AZATHIOPRINE
     Indication: Mucocutaneous disorder
     Route: 065

REACTIONS (1)
  - Exposure during pregnancy [Unknown]
